FAERS Safety Report 7360138-6 (Version None)
Quarter: 2011Q1

REPORT INFORMATION
  Report Type: 
  Country: None (occurrence: None)
  Receive Date: 20110318
  Receipt Date: 20110309
  Transmission Date: 20110831
  Serious: Yes (Hospitalization)
  Sender: FDA-Public Use
  Company Number: US-BIOGENIDEC-2011BI009070

PATIENT
  Age: 55 Year
  Sex: Female
  Weight: 54 kg

DRUGS (2)
  1. AVONEX [Suspect]
     Indication: MULTIPLE SCLEROSIS
     Route: 030
     Dates: start: 20070714
  2. MAXALT [Concomitant]
     Indication: MIGRAINE
     Route: 060

REACTIONS (6)
  - FALL [None]
  - BACK PAIN [None]
  - INTERVERTEBRAL DISC INJURY [None]
  - SCIATICA [None]
  - TREMOR [None]
  - PARANASAL SINUS HYPERSECRETION [None]
